FAERS Safety Report 25407769 (Version 1)
Quarter: 2025Q2

REPORT INFORMATION
  Report Type: Spontaneous
  Country: FR (occurrence: FR)
  Receive Date: 20250606
  Receipt Date: 20250606
  Transmission Date: 20250716
  Serious: Yes (Other)
  Sender: MYLAN
  Company Number: None

PATIENT
  Age: 68 Year
  Sex: Female
  Weight: 49 kg

DRUGS (32)
  1. POSACONAZOLE [Suspect]
     Active Substance: POSACONAZOLE
     Indication: Antifungal prophylaxis
     Dosage: 300 MILLIGRAM, QD (GASTRO-RESISTANT TABLET)
     Dates: start: 20250331, end: 20250407
  2. POSACONAZOLE [Suspect]
     Active Substance: POSACONAZOLE
     Dosage: 300 MILLIGRAM, QD (GASTRO-RESISTANT TABLET)
     Dates: start: 20250331, end: 20250407
  3. POSACONAZOLE [Suspect]
     Active Substance: POSACONAZOLE
     Dosage: 300 MILLIGRAM, QD (GASTRO-RESISTANT TABLET)
     Route: 048
     Dates: start: 20250331, end: 20250407
  4. POSACONAZOLE [Suspect]
     Active Substance: POSACONAZOLE
     Dosage: 300 MILLIGRAM, QD (GASTRO-RESISTANT TABLET)
     Route: 048
     Dates: start: 20250331, end: 20250407
  5. POSACONAZOLE [Suspect]
     Active Substance: POSACONAZOLE
     Dosage: 300 MILLIGRAM, QD
     Dates: start: 20250428, end: 20250512
  6. POSACONAZOLE [Suspect]
     Active Substance: POSACONAZOLE
     Dosage: 300 MILLIGRAM, QD
     Dates: start: 20250428, end: 20250512
  7. POSACONAZOLE [Suspect]
     Active Substance: POSACONAZOLE
     Dosage: 300 MILLIGRAM, QD
     Route: 048
     Dates: start: 20250428, end: 20250512
  8. POSACONAZOLE [Suspect]
     Active Substance: POSACONAZOLE
     Dosage: 300 MILLIGRAM, QD
     Route: 048
     Dates: start: 20250428, end: 20250512
  9. YESCARTA [Concomitant]
     Active Substance: AXICABTAGENE CILOLEUCEL
  10. YESCARTA [Concomitant]
     Active Substance: AXICABTAGENE CILOLEUCEL
     Route: 065
  11. YESCARTA [Concomitant]
     Active Substance: AXICABTAGENE CILOLEUCEL
     Route: 065
  12. YESCARTA [Concomitant]
     Active Substance: AXICABTAGENE CILOLEUCEL
  13. TYENNE [Concomitant]
     Active Substance: TOCILIZUMAB-AAZG
  14. TYENNE [Concomitant]
     Active Substance: TOCILIZUMAB-AAZG
     Route: 065
  15. TYENNE [Concomitant]
     Active Substance: TOCILIZUMAB-AAZG
     Route: 065
  16. TYENNE [Concomitant]
     Active Substance: TOCILIZUMAB-AAZG
  17. FILGRASTIM [Concomitant]
     Active Substance: FILGRASTIM
  18. FILGRASTIM [Concomitant]
     Active Substance: FILGRASTIM
     Route: 065
  19. FILGRASTIM [Concomitant]
     Active Substance: FILGRASTIM
     Route: 065
  20. FILGRASTIM [Concomitant]
     Active Substance: FILGRASTIM
  21. ELTROMBOPAG OLAMINE [Concomitant]
     Active Substance: ELTROMBOPAG OLAMINE
  22. ELTROMBOPAG OLAMINE [Concomitant]
     Active Substance: ELTROMBOPAG OLAMINE
     Route: 065
  23. ELTROMBOPAG OLAMINE [Concomitant]
     Active Substance: ELTROMBOPAG OLAMINE
     Route: 065
  24. ELTROMBOPAG OLAMINE [Concomitant]
     Active Substance: ELTROMBOPAG OLAMINE
  25. Atovaquone/proguanil biogaran [Concomitant]
  26. Atovaquone/proguanil biogaran [Concomitant]
     Route: 065
  27. Atovaquone/proguanil biogaran [Concomitant]
     Route: 065
  28. Atovaquone/proguanil biogaran [Concomitant]
  29. VALACYCLOVIR [Concomitant]
     Active Substance: VALACYCLOVIR HYDROCHLORIDE
  30. VALACYCLOVIR [Concomitant]
     Active Substance: VALACYCLOVIR HYDROCHLORIDE
     Route: 065
  31. VALACYCLOVIR [Concomitant]
     Active Substance: VALACYCLOVIR HYDROCHLORIDE
     Route: 065
  32. VALACYCLOVIR [Concomitant]
     Active Substance: VALACYCLOVIR HYDROCHLORIDE

REACTIONS (2)
  - Hepatic cytolysis [Recovering/Resolving]
  - Cholestasis [Recovering/Resolving]

NARRATIVE: CASE EVENT DATE: 20250404
